FAERS Safety Report 18676974 (Version 2)
Quarter: 2020Q4

REPORT INFORMATION
  Report Type: Spontaneous
  Country: FR (occurrence: FR)
  Receive Date: 20201229
  Receipt Date: 20201231
  Transmission Date: 20210114
  Serious: Yes (Death, Life-Threatening, Other)
  Sender: FDA-Public Use
  Company Number: FR-JNJFOC-20201243410

PATIENT
  Age: 34 Year
  Sex: Male

DRUGS (15)
  1. TRAMADOL HYDROCHLORIDE. [Suspect]
     Active Substance: TRAMADOL HYDROCHLORIDE
     Indication: PRODUCT USED FOR UNKNOWN INDICATION
     Dosage: UNK
     Route: 065
  2. VALIUM [Interacting]
     Active Substance: DIAZEPAM
     Dosage: UNK
     Route: 065
  3. SKENAN [Interacting]
     Active Substance: MORPHINE SULFATE
     Indication: BACK PAIN
     Dosage: 1 DOSAGE FORM, 1/DAY
     Route: 065
  4. DIVARIUS [Suspect]
     Active Substance: PAROXETINE MESYLATE
     Dosage: UNK
     Route: 065
  5. COLTRAMYL [Suspect]
     Active Substance: THIOCOLCHICOSIDE
     Dosage: UNK
     Route: 065
  6. URBANYL [Interacting]
     Active Substance: CLOBAZAM
     Dosage: UNK
     Route: 065
  7. FENTANYL. [Interacting]
     Active Substance: FENTANYL
     Dosage: UNK
     Route: 065
  8. PAROXETINE. [Suspect]
     Active Substance: PAROXETINE
     Dosage: UNK
     Route: 065
  9. SKENAN [Interacting]
     Active Substance: MORPHINE SULFATE
     Dosage: UNK
     Route: 065
  10. ARTANE [Suspect]
     Active Substance: TRIHEXYPHENIDYL HYDROCHLORIDE
     Dosage: UNK
     Route: 065
  11. CLOTIAZEPAM [Interacting]
     Active Substance: CLOTIAZEPAM
     Dosage: UNK
     Route: 065
  12. LYSANXIA [Interacting]
     Active Substance: PRAZEPAM
     Dosage: UNK
     Route: 065
  13. STRESAM [Suspect]
     Active Substance: ETIFOXINE
     Dosage: UNK
     Route: 065
  14. OXYCODONE HYDROCHLORIDE. [Suspect]
     Active Substance: OXYCODONE HYDROCHLORIDE
     Route: 065
  15. XEROQUEL [Suspect]
     Active Substance: QUETIAPINE FUMARATE
     Dosage: UNK
     Route: 065

REACTIONS (7)
  - Myocardial infarction [Unknown]
  - Drug interaction [Fatal]
  - Respiratory depression [Fatal]
  - Overdose [Fatal]
  - Accidental poisoning [Fatal]
  - Hepatocellular injury [Unknown]
  - Drug interaction [Unknown]

NARRATIVE: CASE EVENT DATE: 2016
